FAERS Safety Report 8765444 (Version 1)
Quarter: 2012Q4

REPORT INFORMATION
  Report Type: 
  Country: US (occurrence: US)
  Receive Date: 20120902
  Receipt Date: 20120902
  Transmission Date: 20130627
  Serious: Yes (Disabling, Other)
  Sender: FDA-Public Use
  Company Number: US-PFIZER INC-2012212922

PATIENT
  Sex: Male

DRUGS (1)
  1. NEURONTIN [Suspect]
     Dosage: Unk

REACTIONS (2)
  - Bedridden [Unknown]
  - Withdrawal syndrome [Unknown]
